FAERS Safety Report 9038260 (Version 1)
Quarter: 2013Q1

REPORT INFORMATION
  Report Type: Spontaneous
  Country: US (occurrence: US)
  Receive Date: 20130129
  Receipt Date: 20130129
  Transmission Date: 20140127
  Serious: Yes (Other)
  Sender: FDA-Public Use
  Company Number: US-GLAXOSMITHKLINE-A0998873A

PATIENT
  Sex: Female

DRUGS (2)
  1. WELLBUTRIN [Suspect]
     Indication: EX-TOBACCO USER
     Route: 048
  2. CHANTIX [Suspect]
     Route: 048

REACTIONS (3)
  - Convulsion [Unknown]
  - Adverse drug reaction [Unknown]
  - Feeling abnormal [Unknown]
